FAERS Safety Report 18506589 (Version 1)
Quarter: 2020Q4

REPORT INFORMATION
  Report Type: Spontaneous
  Country: US (occurrence: US)
  Receive Date: 20201113
  Receipt Date: 20201113
  Transmission Date: 20210114
  Serious: Yes (Death)
  Sender: FDA-Public Use
  Company Number: None

PATIENT
  Age: 52 Year
  Sex: Male

DRUGS (1)
  1. ZARXIO [Suspect]
     Active Substance: FILGRASTIM-SNDZ
     Indication: B-CELL LYMPHOMA
     Dosage: ?          OTHER STRENGTH:480;?
     Route: 058
     Dates: start: 202006, end: 202007

REACTIONS (1)
  - Death [None]
